FAERS Safety Report 24639443 (Version 1)
Quarter: 2024Q4

REPORT INFORMATION
  Report Type: Report from Study
  Country: US (occurrence: US)
  Receive Date: 20241119
  Receipt Date: 20241119
  Transmission Date: 20250115
  Serious: Yes (Death, Other)
  Sender: UCB
  Company Number: US-UCBSA-2024058946

PATIENT
  Age: 71 Year
  Sex: Female

DRUGS (1)
  1. ROZANOLIXIZUMAB [Suspect]
     Active Substance: ROZANOLIXIZUMAB
     Indication: Product used for unknown indication
     Dosage: UNK
     Dates: end: 20240907

REACTIONS (1)
  - Amyotrophic lateral sclerosis [Fatal]
